FAERS Safety Report 18062223 (Version 1)
Quarter: 2020Q3

REPORT INFORMATION
  Report Type: Spontaneous
  Country: CA (occurrence: CA)
  Receive Date: 20200723
  Receipt Date: 20200723
  Transmission Date: 20201103
  Serious: Yes (Hospitalization)
  Sender: FDA-Public Use
  Company Number: CA-TEVA-2020-CA-1803270

PATIENT
  Age: 16 Year
  Sex: Male
  Weight: 51 kg

DRUGS (1)
  1. ACT LEVETIRACETAM [Suspect]
     Active Substance: LEVETIRACETAM
     Indication: SEIZURE
     Dosage: 1000 MILLIGRAM DAILY;
     Route: 048

REACTIONS (3)
  - Depressed mood [Recovering/Resolving]
  - Anhedonia [Recovering/Resolving]
  - Overdose [Recovering/Resolving]
